FAERS Safety Report 5508857-8 (Version None)
Quarter: 2007Q4

REPORT INFORMATION
  Report Type: 
  Country: None (occurrence: None)
  Receive Date: 20071105
  Receipt Date: 20071105
  Transmission Date: 20080405
  Serious: Yes (Other)
  Sender: FDA-Public Use
  Company Number: None

PATIENT
  Age: 56 Year
  Sex: Male
  Weight: 77.1115 kg

DRUGS (2)
  1. AMIODIPINE/BENAZEPRIL [Suspect]
     Indication: HYPERTENSION
     Dosage: 1 DAILY PO
     Route: 048
  2. LOTREL [Suspect]

REACTIONS (8)
  - HEADACHE [None]
  - HYPERTENSION [None]
  - MALAISE [None]
  - MENTAL IMPAIRMENT [None]
  - NO THERAPEUTIC RESPONSE [None]
  - PHARMACEUTICAL PRODUCT COMPLAINT [None]
  - SENSATION OF PRESSURE [None]
  - THERAPEUTIC RESPONSE UNEXPECTED WITH DRUG SUBSTITUTION [None]
